FAERS Safety Report 10486098 (Version 3)
Quarter: 2014Q4

REPORT INFORMATION
  Report Type: Spontaneous
  Country: US (occurrence: None)
  Receive Date: 20140929
  Receipt Date: 20141029
  Transmission Date: 20150528
  Serious: Yes (Other)
  Sender: FDA-Public Use
  Company Number: 2014-20393

PATIENT
  Age: 78 Year
  Sex: Female

DRUGS (2)
  1. EYLEA [Suspect]
     Active Substance: AFLIBERCEPT
     Indication: AGE-RELATED MACULAR DEGENERATION
     Dosage: EVERY 4 WEEKS FOR 3 INJECTIONS
     Route: 031
     Dates: start: 20140923
  2. EYLEA [Suspect]
     Active Substance: AFLIBERCEPT
     Indication: MACULAR DEGENERATION
     Dosage: EVERY 4 WEEKS FOR 3 INJECTIONS
     Route: 031
     Dates: start: 20140923

REACTIONS (3)
  - Subretinal fluid [None]
  - Retinal pigment epithelial tear [None]
  - Injection site pain [None]

NARRATIVE: CASE EVENT DATE: 20140423
